FAERS Safety Report 20892889 (Version 1)
Quarter: 2022Q2

REPORT INFORMATION
  Report Type: Spontaneous
  Country: ES (occurrence: ES)
  Receive Date: 20220531
  Receipt Date: 20220531
  Transmission Date: 20220721
  Serious: Yes (Other)
  Sender: FDA-Public Use
  Company Number: None

PATIENT
  Age: 58 Year
  Sex: Female

DRUGS (12)
  1. ARAVA [Suspect]
     Active Substance: LEFLUNOMIDE
     Indication: Psoriatic arthropathy
     Dosage: 20.0 MG C/24 H
     Route: 048
     Dates: start: 20220506, end: 20220512
  2. CALCIUM CARBONATE\CHOLECALCIFEROL [Concomitant]
     Active Substance: CALCIUM CARBONATE\CHOLECALCIFEROL
     Indication: Product used for unknown indication
     Dosage: 1.0 COMP C/24 H (600 MG/1000 IU, 30 TABLETS)
     Route: 048
     Dates: start: 20150728
  3. BUDESONIDE\FORMOTEROL FUMARATE [Concomitant]
     Active Substance: BUDESONIDE\FORMOTEROL FUMARATE
     Indication: Asthma
     Dosage: 1.0 PUFF C/12 H ( 160 MICROGRAMS / 4.5 MICROGRAMS) (120 DOSES)
     Route: 050
     Dates: start: 20170515
  4. LORAZEPAM [Concomitant]
     Active Substance: LORAZEPAM
     Indication: Insomnia
     Dosage: 1.0 MG C/24 H NOC (50 TABLETS)
     Route: 048
     Dates: start: 20210506
  5. PREDNISONE [Concomitant]
     Active Substance: PREDNISONE
     Indication: Psoriatic arthropathy
     Dosage: 5.0 MG AT BREAKFAST (60 TABLETS)
     Route: 048
     Dates: start: 20220506
  6. CALCIFEDIOL [Concomitant]
     Active Substance: CALCIFEDIOL
     Indication: Psoriatic arthropathy
     Dosage: 16000.0 IU EVERY 15 DAYS (10 DRINKABLE AMPOULES OF 1.5 ML)
     Route: 048
     Dates: start: 20161007
  7. ESCITALOPRAM OXALATE [Concomitant]
     Active Substance: ESCITALOPRAM OXALATE
     Indication: Persistent depressive disorder
     Dosage: 20.0 MG AT BREAKFAST
     Route: 048
     Dates: start: 20210408
  8. OMEPRAZOLE [Concomitant]
     Active Substance: OMEPRAZOLE
     Indication: Diaphragmatic hernia
     Dosage: 40.0 MG A-DE
     Route: 048
     Dates: start: 20220429
  9. COSENTYX [Concomitant]
     Active Substance: SECUKINUMAB
     Indication: Psoriatic arthropathy
     Dosage: 300.0 MG EVERY 30 DAYS
     Route: 058
     Dates: start: 20220118
  10. BLASTON [Concomitant]
     Indication: Diaphragmatic hernia
     Dosage: 1.0 MG AT BREAKFAST AND DINNER
     Route: 048
     Dates: start: 20140401
  11. ZOLPIDEM TARTRATE [Concomitant]
     Active Substance: ZOLPIDEM TARTRATE
     Indication: Anxiety
     Dosage: 10.0 MG C/24 H NOC
     Route: 048
     Dates: start: 20180320
  12. ARCOXIA [Concomitant]
     Active Substance: ETORICOXIB
     Indication: Osteoarthritis
     Dosage: 30.0 MG AT BREAKFAST
     Route: 048
     Dates: start: 20190202

REACTIONS (2)
  - Confusional state [Recovering/Resolving]
  - Dizziness [Recovering/Resolving]

NARRATIVE: CASE EVENT DATE: 20220507
